FAERS Safety Report 6832822-1 (Version None)
Quarter: 2010Q3

REPORT INFORMATION
  Report Type: 
  Country: None (occurrence: None)
  Receive Date: 20100712
  Receipt Date: 20070508
  Transmission Date: 20110219
  Serious: No
  Sender: FDA-Public Use
  Company Number: US-PFIZER INC-2007024203

PATIENT
  Sex: Female
  Weight: 47.63 kg

DRUGS (15)
  1. CHANTIX [Suspect]
     Indication: SMOKING CESSATION THERAPY
     Dates: start: 20070311
  2. LIPITOR [Concomitant]
  3. MARINOL [Concomitant]
  4. VALSARTAN [Concomitant]
  5. PREMARIN [Concomitant]
  6. ARICEPT [Concomitant]
  7. DIDANOSINE [Concomitant]
  8. NEXIUM [Concomitant]
  9. ALL OTHER THERAPEUTIC PRODUCTS [Concomitant]
  10. FLUCONAZOLE [Concomitant]
  11. ALL OTHER THERAPEUTIC PRODUCTS [Concomitant]
  12. EFFEXOR [Concomitant]
  13. ACETAMINOPHEN [Concomitant]
  14. ALPRAZOLAM [Concomitant]
  15. NAPRONTAG FLEX [Concomitant]

REACTIONS (3)
  - FEELING COLD [None]
  - TREMOR [None]
  - WITHDRAWAL SYNDROME [None]
